FAERS Safety Report 12727282 (Version 1)
Quarter: 2016Q3

REPORT INFORMATION
  Report Type: Spontaneous
  Country: US (occurrence: US)
  Receive Date: 20160909
  Receipt Date: 20160909
  Transmission Date: 20161109
  Serious: No
  Sender: FDA-Public Use
  Company Number: US-TAKEDA-2016TUS015694

PATIENT
  Age: 53 Year
  Sex: Female
  Weight: 62.13 kg

DRUGS (4)
  1. SYNTHROID [Concomitant]
     Active Substance: LEVOTHYROXINE SODIUM
     Indication: HYPOTHYROIDISM
     Dosage: UNK, QD
     Route: 048
  2. VITAMIN D                          /00107901/ [Concomitant]
     Active Substance: ERGOCALCIFEROL
     Indication: VITAMIN D DEFICIENCY
     Dosage: UNK, QD
     Route: 048
  3. CALCIUM [Concomitant]
     Active Substance: CALCIUM
     Indication: BONE LOSS
     Dosage: UNK, QD
     Route: 048
  4. CONTRAVE [Suspect]
     Active Substance: BUPROPION HYDROCHLORIDE\NALTREXONE HYDROCHLORIDE
     Indication: OVERWEIGHT
     Dosage: 8/90 MG, QD
     Route: 048
     Dates: start: 20160823

REACTIONS (2)
  - Constipation [Unknown]
  - Faeces discoloured [Unknown]

NARRATIVE: CASE EVENT DATE: 201608
